FAERS Safety Report 5080521-1 (Version None)
Quarter: 2006Q3

REPORT INFORMATION
  Report Type: 
  Country: None (occurrence: None)
  Receive Date: 20060809
  Receipt Date: 20060809
  Transmission Date: 20061208
  Serious: Yes (Other)
  Sender: FDA-Public Use
  Company Number: 2006AL001947

PATIENT
  Age: 24 Year
  Sex: Female

DRUGS (1)
  1. NIFEDIPINE [Suspect]
     Dosage: 60 MG; QD; PO
     Route: 048

REACTIONS (4)
  - DRUG EXPOSURE DURING PREGNANCY [None]
  - HYPOTENSION [None]
  - INTRA-UTERINE DEATH [None]
  - PROCEDURAL COMPLICATION [None]
